FAERS Safety Report 7750726-7 (Version None)
Quarter: 2011Q3

REPORT INFORMATION
  Report Type: 
  Country: None (occurrence: None)
  Receive Date: 20110914
  Receipt Date: 20110907
  Transmission Date: 20111222
  Serious: Yes (Death)
  Sender: FDA-Public Use
  Company Number: IT-ABBOTT-11P-083-0852392-00

PATIENT
  Age: 64 Year
  Sex: Female
  Weight: 85 kg

DRUGS (3)
  1. DEPAKENE [Suspect]
     Indication: PRODUCT USED FOR UNKNOWN INDICATION
     Dosage: OVERDOSE: UNKNOWN
  2. ESCITALOPRAM [Suspect]
     Indication: PRODUCT USED FOR UNKNOWN INDICATION
     Dosage: OVERDOSE: UNKNOWN
  3. MIRTAZAPINE [Suspect]
     Indication: PRODUCT USED FOR UNKNOWN INDICATION
     Dosage: OVERDOSE: UNKNOWN

REACTIONS (2)
  - OVERDOSE [None]
  - COMPLETED SUICIDE [None]
